FAERS Safety Report 11320048 (Version 1)
Quarter: 2015Q3

REPORT INFORMATION
  Report Type: Spontaneous
  Country: AU (occurrence: AU)
  Receive Date: 20150729
  Receipt Date: 20150729
  Transmission Date: 20151125
  Serious: Yes (Death)
  Sender: FDA-Public Use
  Company Number: AU-SA-2015SA107923

PATIENT
  Sex: Female

DRUGS (2)
  1. FABRAZYME [Suspect]
     Active Substance: AGALSIDASE BETA
     Indication: FABRY^S DISEASE
     Route: 042
  2. REPLAGAL [Concomitant]
     Active Substance: AGALSIDASE ALFA

REACTIONS (2)
  - Disease progression [Fatal]
  - Cardiomyopathy [Fatal]
